FAERS Safety Report 16386658 (Version 1)
Quarter: 2019Q2

REPORT INFORMATION
  Report Type: Other
  Country: IT (occurrence: IT)
  Receive Date: 20190604
  Receipt Date: 20190604
  Transmission Date: 20190711
  Serious: Yes (Hospitalization, Other)
  Sender: FDA-Public Use
  Company Number: IT-DEXPHARM-20190378

PATIENT
  Age: 55 Year
  Sex: Male

DRUGS (3)
  1. LANSOPRAZOLE. [Suspect]
     Active Substance: LANSOPRAZOLE
     Indication: GASTROOESOPHAGEAL REFLUX DISEASE
  2. DICLOFENAC [Interacting]
     Active Substance: DICLOFENAC
     Indication: RHEUMATOID ARTHRITIS
     Dates: start: 2009
  3. HYDROXYCHLOROQUINE [Interacting]
     Active Substance: HYDROXYCHLOROQUINE
     Indication: RHEUMATOID ARTHRITIS
     Dates: start: 2009

REACTIONS (1)
  - Infection reactivation [Recovered/Resolved]
